FAERS Safety Report 15469586 (Version 1)
Quarter: 2018Q4

REPORT INFORMATION
  Report Type: Spontaneous
  Country: DE (occurrence: DE)
  Receive Date: 20181005
  Receipt Date: 20181005
  Transmission Date: 20190205
  Serious: Yes (Life-Threatening, Hospitalization)
  Sender: FDA-Public Use
  Company Number: DE-ANIPHARMA-2018-DE-000152

PATIENT
  Age: 71 Year
  Sex: Female
  Weight: 80 kg

DRUGS (12)
  1. PALLADON [Concomitant]
     Active Substance: HYDROMORPHONE
     Dosage: 8MG BID
     Route: 048
  2. BISOPROLOL [Concomitant]
     Active Substance: BISOPROLOL
     Dosage: 5MG DAILY
     Route: 048
     Dates: start: 2002
  3. LANTUS [Concomitant]
     Active Substance: INSULIN GLARGINE
     Dosage: 32 IU DAILY
     Route: 058
     Dates: start: 1994
  4. FUROSEMIDE. [Concomitant]
     Active Substance: FUROSEMIDE
     Route: 048
     Dates: start: 1996
  5. SIMVASTATIN. [Concomitant]
     Active Substance: SIMVASTATIN
     Dosage: 40MG DAILY
     Route: 048
     Dates: start: 1996
  6. TAVOR (LORAZEPAM) [Concomitant]
     Active Substance: LORAZEPAM
     Dosage: 2MG DAILY
     Route: 048
     Dates: start: 2007
  7. SPIRONOLACTONE. [Suspect]
     Active Substance: SPIRONOLACTONE
     Dosage: 25MG DAILY
     Route: 048
     Dates: start: 2006, end: 20080826
  8. ASPIRIN. [Concomitant]
     Active Substance: ASPIRIN
     Dosage: 100MG DAILY
     Route: 048
     Dates: start: 2002, end: 20080826
  9. ATACAND [Suspect]
     Active Substance: CANDESARTAN CILEXETIL
     Indication: HYPERTENSION
     Dosage: 8MG DAILY
     Route: 048
     Dates: start: 2004, end: 20080828
  10. ENALAPRIL MALEATE. [Suspect]
     Active Substance: ENALAPRIL MALEATE
     Dosage: 2.5MG DAILY
     Route: 048
     Dates: start: 2000, end: 20080826
  11. NOVORAPID [Concomitant]
     Active Substance: INSULIN ASPART
     Dosage: 26/22/24 IU THREE TIMES A DAY
     Route: 058
     Dates: start: 1994
  12. ISDN ^STADA^ [Concomitant]
     Dosage: 120MG DAILY
     Route: 048
     Dates: start: 1996, end: 20080826

REACTIONS (7)
  - Renal failure [Unknown]
  - Drug interaction [Recovered/Resolved]
  - Dizziness [Recovered/Resolved]
  - Hyperkalaemia [Recovered/Resolved]
  - Dyspnoea [Recovered/Resolved]
  - Exercise tolerance decreased [Recovered/Resolved]
  - Oedema peripheral [Recovered/Resolved]

NARRATIVE: CASE EVENT DATE: 20080820
